FAERS Safety Report 21584943 (Version 1)
Quarter: 2022Q4

REPORT INFORMATION
  Report Type: Report from Study
  Country: US (occurrence: US)
  Receive Date: 20221111
  Receipt Date: 20221111
  Transmission Date: 20230113
  Serious: Yes (Other)
  Sender: FDA-Public Use
  Company Number: US-JNJFOC-20220432097

PATIENT
  Age: 69 Year
  Sex: Female
  Weight: 53.572 kg

DRUGS (6)
  1. STELARA [Suspect]
     Active Substance: USTEKINUMAB
     Indication: Crohn^s disease
     Route: 058
     Dates: start: 202107
  2. STELARA [Suspect]
     Active Substance: USTEKINUMAB
     Route: 040
     Dates: start: 202106
  3. STELARA [Suspect]
     Active Substance: USTEKINUMAB
     Route: 058
  4. TIMOLOL [Concomitant]
     Active Substance: TIMOLOL
     Indication: Glaucoma
  5. ALPHAGAN P [Concomitant]
     Active Substance: BRIMONIDINE TARTRATE
     Indication: Glaucoma
  6. LUMIGAN [Concomitant]
     Active Substance: BIMATOPROST
     Indication: Glaucoma

REACTIONS (11)
  - Glaucoma [Unknown]
  - Photophobia [Not Recovered/Not Resolved]
  - Neck pain [Unknown]
  - Tension headache [Not Recovered/Not Resolved]
  - Confusional state [Unknown]
  - Drug ineffective [Unknown]
  - Ophthalmic migraine [Unknown]
  - Feeling abnormal [Unknown]
  - Product use issue [Unknown]
  - Off label use [Unknown]
  - Balance disorder [Unknown]

NARRATIVE: CASE EVENT DATE: 20220101
